FAERS Safety Report 13952338 (Version 1)
Quarter: 2017Q3

REPORT INFORMATION
  Report Type: Spontaneous
  Country: US (occurrence: US)
  Receive Date: 20170911
  Receipt Date: 20170911
  Transmission Date: 20171128
  Serious: No
  Sender: FDA-Public Use
  Company Number: US-TEVA-702182USA

PATIENT
  Sex: Male
  Weight: 118.04 kg

DRUGS (1)
  1. FENTANYL. [Suspect]
     Active Substance: FENTANYL
     Indication: PAIN
     Dosage: 75MCG 5
     Route: 062
     Dates: start: 2008

REACTIONS (7)
  - Product adhesion issue [Unknown]
  - Wrong technique in product usage process [Unknown]
  - Overdose [Recovered/Resolved]
  - Product physical issue [Unknown]
  - Headache [Recovered/Resolved]
  - Ocular hyperaemia [Recovered/Resolved]
  - Product leakage [Unknown]
